FAERS Safety Report 6933191-9 (Version None)
Quarter: 2010Q3

REPORT INFORMATION
  Report Type: 
  Country: None (occurrence: None)
  Receive Date: 20100820
  Receipt Date: 20100812
  Transmission Date: 20110219
  Serious: Yes (Hospitalization)
  Sender: FDA-Public Use
  Company Number: US-BIOGENIDEC-2010BI028307

PATIENT
  Sex: Female

DRUGS (2)
  1. AVONEX [Suspect]
     Indication: MULTIPLE SCLEROSIS
     Route: 030
  2. PAIN MEDICATION (NOS) [Concomitant]

REACTIONS (2)
  - DRUG DELIVERY DEVICE IMPLANTATION [None]
  - STAPHYLOCOCCAL SEPSIS [None]
